FAERS Safety Report 5096736-2 (Version None)
Quarter: 2006Q3

REPORT INFORMATION
  Report Type: 
  Country: None (occurrence: None)
  Receive Date: 20060831
  Receipt Date: 20060817
  Transmission Date: 20061208
  Serious: Yes (Disabling)
  Sender: FDA-Public Use
  Company Number: 2006084136

PATIENT
  Age: 72 Year
  Sex: Male

DRUGS (1)
  1. RELPAX [Suspect]
     Indication: MIGRAINE
     Dosage: 40 MG (40 MG, 1 IN 1 TOTAL), ORAL
     Route: 048
     Dates: start: 20060201, end: 20060201

REACTIONS (4)
  - DEPRESSION [None]
  - DYSPHONIA [None]
  - ECONOMIC PROBLEM [None]
  - HEADACHE [None]
